FAERS Safety Report 5727633-4 (Version None)
Quarter: 2008Q2

REPORT INFORMATION
  Report Type: 
  Country: None (occurrence: None)
  Receive Date: 20080505
  Receipt Date: 20080425
  Transmission Date: 20081010
  Serious: Yes (Hospitalization)
  Sender: FDA-Public Use
  Company Number: A0717131B

PATIENT
  Age: 66 Year
  Sex: Male
  Weight: 76 kg

DRUGS (3)
  1. LAPATINIB [Suspect]
     Dosage: 1500MG PER DAY
     Route: 048
     Dates: start: 20080206
  2. CISPLATIN [Suspect]
     Dosage: 100MGM2 CYCLIC
     Route: 042
     Dates: start: 20080214
  3. RADIOTHERAPY [Suspect]
     Dosage: 10GY PER DAY
     Route: 061
     Dates: start: 20080211

REACTIONS (1)
  - SOFT TISSUE INFLAMMATION [None]
